FAERS Safety Report 5092029-8 (Version None)
Quarter: 2006Q3

REPORT INFORMATION
  Report Type: 
  Country: None (occurrence: None)
  Receive Date: 20060825
  Receipt Date: 20060815
  Transmission Date: 20061208
  Serious: Yes (Other)
  Sender: FDA-Public Use
  Company Number: 2006099997

PATIENT
  Sex: Female

DRUGS (1)
  1. XALATAN [Suspect]
     Indication: DRUG USE FOR UNKNOWN INDICATION
     Dosage: TOPICAL
     Route: 061
     Dates: start: 20050901, end: 20060101

REACTIONS (12)
  - ARTHRALGIA [None]
  - DIARRHOEA [None]
  - FEELING HOT [None]
  - GLAUCOMA SURGERY [None]
  - INSOMNIA [None]
  - MUSCULOSKELETAL STIFFNESS [None]
  - PAIN IN EXTREMITY [None]
  - PARAESTHESIA [None]
  - TACHYCARDIA [None]
  - TEMPERATURE INTOLERANCE [None]
  - TREMOR [None]
  - VEIN WALL HYPERTROPHY [None]
